FAERS Safety Report 7439842-7 (Version None)
Quarter: 2011Q2

REPORT INFORMATION
  Report Type: 
  Country: None (occurrence: None)
  Receive Date: 20110427
  Receipt Date: 20100607
  Transmission Date: 20111010
  Serious: No
  Sender: FDA-Public Use
  Company Number: US-MYLANLABS-2010S1010089

PATIENT
  Age: 46 Year
  Sex: Female

DRUGS (3)
  1. DILTIAZEM HCL [Suspect]
     Indication: MITRAL VALVE PROLAPSE
     Route: 048
  2. TRIAMTERENE AND HYDROCHLOROTHIAZIDE [Concomitant]
     Dosage: 37.5/25MG
     Route: 048
  3. EPIPEN [Concomitant]
     Indication: ANAPHYLACTIC REACTION

REACTIONS (1)
  - HYPERSENSITIVITY [None]
